FAERS Safety Report 16438153 (Version 2)
Quarter: 2019Q4

REPORT INFORMATION
  Report Type: Spontaneous
  Country: US (occurrence: US)
  Receive Date: 20190617
  Receipt Date: 20191025
  Transmission Date: 20200122
  Serious: No
  Sender: FDA-Public Use
  Company Number: US-SHIRE-US201919227

PATIENT
  Sex: Female

DRUGS (1)
  1. NATPARA (PARATHYROID HORMONE) [Suspect]
     Active Substance: PARATHYROID HORMONE
     Indication: PRODUCT USED FOR UNKNOWN INDICATION
     Dosage: 75 MICROGRAM, 1X/DAY:QD
     Route: 050
     Dates: start: 20170912

REACTIONS (6)
  - Discomfort [Unknown]
  - Asthenia [Unknown]
  - Abdominal pain upper [Unknown]
  - Bone pain [Unknown]
  - Recalled product administered [Unknown]
  - Blood calcium decreased [Unknown]
